FAERS Safety Report 13956984 (Version 1)
Quarter: 2017Q3

REPORT INFORMATION
  Report Type: Spontaneous
  Country: BR (occurrence: BR)
  Receive Date: 20170911
  Receipt Date: 20170911
  Transmission Date: 20171128
  Serious: Yes (Other)
  Sender: FDA-Public Use
  Company Number: BR-PFIZER INC-2017386411

PATIENT
  Age: 68 Year
  Sex: Female

DRUGS (1)
  1. XALATAN [Suspect]
     Active Substance: LATANOPROST
     Dosage: UNK
     Dates: start: 2015

REACTIONS (2)
  - Gait inability [Not Recovered/Not Resolved]
  - Malaise [Not Recovered/Not Resolved]
